FAERS Safety Report 20557118 (Version 10)
Quarter: 2025Q1

REPORT INFORMATION
  Report Type: Spontaneous
  Country: DE (occurrence: DE)
  Receive Date: 20220307
  Receipt Date: 20250104
  Transmission Date: 20250409
  Serious: Yes (Other)
  Sender: ACCORD
  Company Number: None

PATIENT
  Age: 77 Year
  Sex: Male
  Weight: 77 kg

DRUGS (74)
  1. ROSUVASTATIN CALCIUM [Suspect]
     Active Substance: ROSUVASTATIN CALCIUM
     Indication: Product used for unknown indication
  2. TADALAFIL [Suspect]
     Active Substance: TADALAFIL
     Indication: Product used for unknown indication
  3. RIVAROXABAN [Suspect]
     Active Substance: RIVAROXABAN
     Indication: Product used for unknown indication
  4. IBUPROFEN [Suspect]
     Active Substance: IBUPROFEN
     Indication: Product used for unknown indication
  5. CLOPIDOGREL [Suspect]
     Active Substance: CLOPIDOGREL BISULFATE
     Indication: Product used for unknown indication
     Dosage: BID (1-0-1)
     Route: 065
     Dates: start: 20201210
  6. ATROVENT [Suspect]
     Active Substance: IPRATROPIUM BROMIDE
     Indication: Nasopharyngitis
     Route: 055
     Dates: start: 2018, end: 2018
  7. MAGNESIUM [Suspect]
     Active Substance: MAGNESIUM
     Indication: Product used for unknown indication
     Route: 065
  8. BISOPROLOL FUMARATE [Suspect]
     Active Substance: BISOPROLOL FUMARATE
     Indication: Product used for unknown indication
     Dosage: UNK, QD (1-0-0)
     Route: 065
     Dates: start: 20201210
  9. GINKGO [Suspect]
     Active Substance: GINKGO
     Indication: Product used for unknown indication
     Dosage: UNK, STRENGTH: 500) BID (1-0-1) BID
     Route: 065
  10. TAMSULOSIN [Suspect]
     Active Substance: TAMSULOSIN
     Indication: Product used for unknown indication
     Route: 065
  11. ALIROCUMAB [Suspect]
     Active Substance: ALIROCUMAB
     Indication: Product used for unknown indication
     Route: 065
  12. FLUTICASONE PROPIONATE\SALMETEROL XINAFOATE [Suspect]
     Active Substance: FLUTICASONE PROPIONATE\SALMETEROL XINAFOATE
     Indication: Cough
     Route: 055
     Dates: start: 2018, end: 2018
  13. ACETIC ACID\DELTAMETHRIN [Suspect]
     Active Substance: ACETIC ACID\DELTAMETHRIN
     Indication: Product used for unknown indication
     Route: 065
  14. BIOTIN [Suspect]
     Active Substance: BIOTIN
     Indication: Product used for unknown indication
     Dosage: UNK, QD (1-0-0)
     Route: 065
  15. MAGNESIUM ASPARTATE\POTASSIUM ASPARTATE [Suspect]
     Active Substance: MAGNESIUM ASPARTATE\POTASSIUM ASPARTATE
     Indication: Product used for unknown indication
     Route: 065
  16. ALBUTEROL [Suspect]
     Active Substance: ALBUTEROL
     Indication: Pneumothorax
     Route: 055
     Dates: start: 2018, end: 2018
  17. VOLTAREN [Suspect]
     Active Substance: DICLOFENAC SODIUM
     Indication: Product used for unknown indication
     Route: 065
  18. VITAMIN D [Suspect]
     Active Substance: VITAMIN D NOS
     Indication: Product used for unknown indication
     Dosage: QW (20,000 I.E)
     Route: 065
  19. IBUPROFEN [Suspect]
     Active Substance: IBUPROFEN
     Indication: Product used for unknown indication
     Route: 065
  20. CIALIS [Suspect]
     Active Substance: TADALAFIL
     Indication: Product used for unknown indication
     Route: 065
  21. ASPIRIN [Suspect]
     Active Substance: ASPIRIN
     Indication: Product used for unknown indication
     Route: 065
  22. MOMETASONE [Suspect]
     Active Substance: MOMETASONE
     Indication: Product used for unknown indication
     Route: 065
  23. CRESTOR [Suspect]
     Active Substance: ROSUVASTATIN CALCIUM
     Indication: Product used for unknown indication
     Route: 065
  24. COLESEVELAM HYDROCHLORIDE [Suspect]
     Active Substance: COLESEVELAM HYDROCHLORIDE
     Indication: Product used for unknown indication
     Route: 065
  25. AMBROXOL HYDROCHLORIDE [Suspect]
     Active Substance: AMBROXOL HYDROCHLORIDE
     Indication: Product used for unknown indication
     Route: 065
  26. VITAMIN E [Suspect]
     Active Substance: .ALPHA.-TOCOPHEROL
     Indication: Product used for unknown indication
     Route: 065
  27. XARELTO [Suspect]
     Active Substance: RIVAROXABAN
     Indication: Product used for unknown indication
     Route: 065
  28. SOAP [Suspect]
     Active Substance: SOAP
     Indication: Bronchitis
     Route: 065
  29. MOMETASONE [Suspect]
     Active Substance: MOMETASONE
     Indication: Product used for unknown indication
     Dosage: 2 PUFF(S), BID UNK, BID, 2 PUFFS (1-0-1)
     Route: 065
  30. EVOLOCUMAB [Suspect]
     Active Substance: EVOLOCUMAB
     Indication: Product used for unknown indication
     Dosage: UNK, Q3W, PRE-FILLED SYRINGE
     Route: 065
  31. CALCIUM [Suspect]
     Active Substance: CALCIUM
     Indication: Product used for unknown indication
     Dosage: (STRENGTH: 500) BID (1-0-1)
     Route: 065
  32. AMBROXOL HYDROCHLORIDE [Suspect]
     Active Substance: AMBROXOL HYDROCHLORIDE
     Indication: Product used for unknown indication
  33. COLESEVELAM HYDROCHLORIDE [Suspect]
     Active Substance: COLESEVELAM HYDROCHLORIDE
     Indication: Product used for unknown indication
  34. MAGNESIUM OROTATE [Suspect]
     Active Substance: MAGNESIUM OROTATE
     Indication: Product used for unknown indication
  35. DICLOFENAC [Suspect]
     Active Substance: DICLOFENAC
     Indication: Product used for unknown indication
     Dates: start: 2018
  36. IBUPROFEN [Suspect]
     Active Substance: IBUPROFEN
     Indication: Product used for unknown indication
  37. FLUTICASONE PROPIONATE\SALMETEROL XINAFOATE [Suspect]
     Active Substance: FLUTICASONE PROPIONATE\SALMETEROL XINAFOATE
     Indication: Secretion discharge
     Route: 055
     Dates: end: 2018
  38. CALCIUM PANTOTHENATE [Suspect]
     Active Substance: CALCIUM PANTOTHENATE
     Indication: Product used for unknown indication
  39. COLESEVELAM HYDROCHLORIDE [Suspect]
     Active Substance: COLESEVELAM HYDROCHLORIDE
     Indication: Product used for unknown indication
  40. SALMETEROL XINAFOATE [Suspect]
     Active Substance: SALMETEROL XINAFOATE
     Indication: Dysphonia
     Dates: start: 2018, end: 2018
  41. HERBALS\PHENYL SALICYLATE [Suspect]
     Active Substance: HERBALS\PHENYL SALICYLATE
     Indication: Bronchitis
  42. .ALPHA.-TOCOPHEROL ACETATE [Suspect]
     Active Substance: .ALPHA.-TOCOPHEROL ACETATE
     Indication: Product used for unknown indication
  43. CALCIUM CARBONATE [Suspect]
     Active Substance: CALCIUM CARBONATE
     Indication: Product used for unknown indication
  44. HERBALS [Suspect]
     Active Substance: HERBALS
     Indication: Product used for unknown indication
  45. CALCIUM PANTOTHENATE [Suspect]
     Active Substance: CALCIUM PANTOTHENATE
     Indication: Product use in unapproved indication
  46. FLUTICASONE [Suspect]
     Active Substance: FLUTICASONE
     Indication: Dysphonia
  47. PREDNISOLONE [Concomitant]
     Active Substance: PREDNISOLONE
     Indication: Product used for unknown indication
     Route: 065
  48. OLMESARTAN MEDOXOMIL [Concomitant]
     Active Substance: OLMESARTAN MEDOXOMIL
     Indication: Product used for unknown indication
  49. MAGNESIUM ASPARTATE HYDROCHLORIDE [Concomitant]
     Active Substance: MAGNESIUM ASPARTATE HYDROCHLORIDE
     Indication: Product used for unknown indication
     Dosage: TWICE DAILY STRENGTH: 500) BID (1-0-1)
  50. FLUTICASONE PROPIONATE\SALMETEROL XINAFOATE [Concomitant]
     Active Substance: FLUTICASONE PROPIONATE\SALMETEROL XINAFOATE
     Indication: Dyspnoea
  51. CALCIUM CARBONATE [Concomitant]
     Active Substance: CALCIUM CARBONATE
  52. PEPPERMINT OIL [Concomitant]
     Active Substance: PEPPERMINT OIL
     Indication: Product used for unknown indication
  53. EUCALYPTUS OIL [Concomitant]
     Active Substance: EUCALYPTUS OIL
     Indication: Product used for unknown indication
  54. PANTOTHENIC ACID [Suspect]
     Active Substance: PANTOTHENIC ACID
     Indication: Product used for unknown indication
     Dates: start: 2018
  55. MAGNESIUM GLUCONATE [Suspect]
     Active Substance: MAGNESIUM GLUCONATE
     Indication: Product used for unknown indication
  56. CLOPIDOGREL BISULFATE [Suspect]
     Active Substance: CLOPIDOGREL BISULFATE
     Indication: Product used for unknown indication
  57. DICLOFENAC DIETHYLAMINE [Suspect]
     Active Substance: DICLOFENAC DIETHYLAMINE
     Indication: Product used for unknown indication
  58. EVOLOCUMAB [Suspect]
     Active Substance: EVOLOCUMAB
     Indication: Product used for unknown indication
  59. TOCOPHEROL ACETATE [Suspect]
     Active Substance: .ALPHA.-TOCOPHEROL ACETATE
     Indication: Product used for unknown indication
  60. SOAP [Suspect]
     Active Substance: SOAP
     Indication: Asthma
     Route: 065
  61. MOMETASONE [Suspect]
     Active Substance: MOMETASONE
     Indication: Product used for unknown indication
     Dosage: 2 DOSAGE FORM, DAILY(1 IN 0.5 DAY)
     Route: 065
  62. MOMETASONE [Suspect]
     Active Substance: MOMETASONE
     Indication: Product used for unknown indication
     Dosage: 2 PUFFS BID
     Route: 065
  63. .ALPHA.-TOCOPHEROL ACETATE [Suspect]
     Active Substance: .ALPHA.-TOCOPHEROL ACETATE
     Indication: Product used for unknown indication
  64. BISOPROLOL FUMARATE [Suspect]
     Active Substance: BISOPROLOL FUMARATE
     Indication: Product used for unknown indication
     Dosage: LAST ADMINISTRATION 10-DEC-2020
     Route: 065
     Dates: start: 2020
  65. ACETIC ACID\DELTAMETHRIN [Suspect]
     Active Substance: ACETIC ACID\DELTAMETHRIN
     Indication: Product used for unknown indication
     Route: 065
  66. EVOLOCUMAB [Suspect]
     Active Substance: EVOLOCUMAB
     Indication: Product used for unknown indication
     Dosage: 1 IN 1 WEEK
     Route: 065
  67. CALCIUM [Suspect]
     Active Substance: CALCIUM
     Indication: Product used for unknown indication
     Dosage: (STRENGTH: 500) BID (1-0-1)
     Route: 065
  68. CALCIUM CARBONATE [Suspect]
     Active Substance: CALCIUM CARBONATE
     Indication: Product used for unknown indication
  69. CALCIUM CARBONATE [Suspect]
     Active Substance: CALCIUM CARBONATE
     Indication: Product used for unknown indication
  70. FLUTICASONE PROPIONATE\SALMETEROL XINAFOATE [Suspect]
     Active Substance: FLUTICASONE PROPIONATE\SALMETEROL XINAFOATE
     Indication: Dyspnoea
     Route: 055
     Dates: start: 2018, end: 2018
  71. ASPIRIN [Suspect]
     Active Substance: ASPIRIN
     Indication: Product used for unknown indication
     Route: 065
  72. SOAP [Suspect]
     Active Substance: SOAP
     Indication: Bronchitis
     Route: 065
  73. SOAP [Suspect]
     Active Substance: SOAP
     Indication: Bronchitis
     Route: 065
  74. SOAP [Suspect]
     Active Substance: SOAP
     Indication: Bronchitis
     Route: 065

REACTIONS (24)
  - Pneumothorax [Not Recovered/Not Resolved]
  - Exostosis [Unknown]
  - Dysphonia [Not Recovered/Not Resolved]
  - Fractional exhaled nitric oxide increased [Recovered/Resolved]
  - Nasopharyngitis [Unknown]
  - Coronary artery disease [Unknown]
  - Chest discomfort [Not Recovered/Not Resolved]
  - Myoglobin blood increased [Unknown]
  - Plantar fasciitis [Unknown]
  - Sensation of foreign body [Unknown]
  - Obstructive sleep apnoea syndrome [Unknown]
  - Increased upper airway secretion [Unknown]
  - Dyspnoea exertional [Unknown]
  - Cardiac disorder [Unknown]
  - Brain natriuretic peptide increased [Unknown]
  - Atrial fibrillation [Recovered/Resolved]
  - Muscle spasms [Unknown]
  - Wheezing [Unknown]
  - Secretion discharge [Unknown]
  - Obstructive airways disorder [Unknown]
  - Eosinophilia [Unknown]
  - Dyspnoea [Unknown]
  - Cough [Not Recovered/Not Resolved]
  - Bronchospasm [Unknown]

NARRATIVE: CASE EVENT DATE: 20180101
